FAERS Safety Report 19479014 (Version 1)
Quarter: 2021Q2

REPORT INFORMATION
  Report Type: Spontaneous
  Country: AU (occurrence: AU)
  Receive Date: 20210630
  Receipt Date: 20210630
  Transmission Date: 20210717
  Serious: Yes (Other)
  Sender: FDA-Public Use
  Company Number: AU-AMGEN-AUSSP2021096818

PATIENT
  Age: 80 Year
  Sex: Male

DRUGS (7)
  1. DOCETAXEL. [Concomitant]
     Active Substance: DOCETAXEL
  2. CARBOPLATIN;PACLITAXEL [Suspect]
     Active Substance: CARBOPLATIN\PACLITAXEL
     Indication: PRODUCT USED FOR UNKNOWN INDICATION
     Dosage: UNK
     Route: 065
     Dates: start: 202012
  3. ENZALUTAMIDE [Concomitant]
     Active Substance: ENZALUTAMIDE
  4. CABAZITAXEL [Concomitant]
     Active Substance: CABAZITAXEL
  5. COSUDEX [Concomitant]
     Active Substance: BICALUTAMIDE
  6. XGEVA [Suspect]
     Active Substance: DENOSUMAB
     Indication: METASTASES TO BONE
     Dosage: UNK
     Route: 065
  7. ZOLADEX [Concomitant]
     Active Substance: GOSERELIN ACETATE

REACTIONS (3)
  - Prostate cancer metastatic [Unknown]
  - Rash morbilliform [Recovered/Resolved]
  - Rash pruritic [Recovered/Resolved]
